FAERS Safety Report 7381746-2 (Version None)
Quarter: 2011Q1

REPORT INFORMATION
  Report Type: 
  Country: None (occurrence: None)
  Receive Date: 20110329
  Receipt Date: 20101012
  Transmission Date: 20110831
  Serious: Yes (Hospitalization)
  Sender: FDA-Public Use
  Company Number: US-BAYER-201021925NA

PATIENT
  Sex: Female
  Weight: 65.76 kg

DRUGS (3)
  1. METFORMIN HCL [Concomitant]
  2. YASMIN [Suspect]
     Indication: CONTRACEPTION
     Dosage: UNK UNK, UNK
     Route: 048
     Dates: start: 20070214, end: 20070507
  3. NAPROXEN [Concomitant]

REACTIONS (2)
  - CEREBROVASCULAR ACCIDENT [None]
  - CEREBRAL INFARCTION [None]
